FAERS Safety Report 13576867 (Version 1)
Quarter: 2017Q2

REPORT INFORMATION
  Report Type: Spontaneous
  Country: US (occurrence: US)
  Receive Date: 20170524
  Receipt Date: 20170524
  Transmission Date: 20170830
  Serious: Yes (Other)
  Sender: FDA-Public Use
  Company Number: US-009507513-1705USA009107

PATIENT
  Age: 69 Year
  Sex: Male

DRUGS (3)
  1. HYALURONIDASE [Suspect]
     Active Substance: HYALURONIDASE
     Indication: OESOPHAGEAL ADENOCARCINOMA
     Dosage: UNK
     Route: 042
     Dates: start: 201610
  2. KEYTRUDA [Suspect]
     Active Substance: PEMBROLIZUMAB
     Indication: OESOPHAGEAL ADENOCARCINOMA
     Dosage: UNK, INFUSION EVERY 3 WEEKS
     Route: 042
     Dates: start: 201610
  3. LOVENOX [Concomitant]
     Active Substance: ENOXAPARIN SODIUM
     Indication: PROPHYLAXIS
     Dosage: UNK

REACTIONS (5)
  - Seasonal allergy [Not Recovered/Not Resolved]
  - Pain in extremity [Not Recovered/Not Resolved]
  - Fatigue [Not Recovered/Not Resolved]
  - Haemorrhage [Not Recovered/Not Resolved]
  - Muscle spasms [Not Recovered/Not Resolved]
